FAERS Safety Report 26023941 (Version 2)
Quarter: 2025Q4

REPORT INFORMATION
  Report Type: Spontaneous
  Country: EU (occurrence: EU)
  Receive Date: 20251111
  Receipt Date: 20251114
  Transmission Date: 20260118
  Serious: Yes (Life-Threatening, Hospitalization, Other)
  Sender: SANDOZ
  Company Number: EU-EVER-2024-Peme-362

PATIENT
  Age: 34 Year
  Sex: Male

DRUGS (5)
  1. CARBOPLATIN [Suspect]
     Active Substance: CARBOPLATIN
     Indication: Bronchial carcinoma
     Dosage: UNK
     Route: 065
     Dates: start: 2022
  2. IPILIMUMAB [Suspect]
     Active Substance: IPILIMUMAB
     Indication: Bronchial carcinoma
     Dosage: UNK
     Route: 065
     Dates: start: 2022
  3. NIVOLUMAB [Suspect]
     Active Substance: NIVOLUMAB
     Indication: Bronchial carcinoma
     Dosage: UNK
     Route: 065
     Dates: start: 2022
  4. PEMETREXED [Suspect]
     Active Substance: PEMETREXED
     Indication: Disease progression
     Dosage: UNK
     Route: 065
     Dates: start: 2022
  5. PEMETREXED [Suspect]
     Active Substance: PEMETREXED
     Indication: Bronchial carcinoma

REACTIONS (5)
  - Pancreatitis necrotising [Recovered/Resolved]
  - Pancreatitis acute [Recovered/Resolved]
  - Nausea [Recovered/Resolved]
  - Vomiting [Recovered/Resolved]
  - Abdominal pain [Recovered/Resolved]
